FAERS Safety Report 5517834-2 (Version None)
Quarter: 2007Q4

REPORT INFORMATION
  Report Type: 
  Country: None (occurrence: None)
  Receive Date: 20071113
  Receipt Date: 20071105
  Transmission Date: 20080405
  Serious: Yes (Other)
  Sender: FDA-Public Use
  Company Number: S07-USA-05816-01

PATIENT
  Age: 58 Year
  Sex: Male

DRUGS (7)
  1. LEXAPRO [Suspect]
     Indication: ANXIETY
     Dosage: 20 MG QD;PO
     Route: 048
     Dates: start: 20020101
  2. LEXAPRO [Suspect]
     Indication: DEPRESSION
     Dosage: 20 MG QD;PO
     Route: 048
     Dates: start: 20020101
  3. PREDNISONE TAB [Concomitant]
  4. TYLENOL #3                    (ACETAMINOPHEN AND CODEINE) [Concomitant]
  5. METHOTREXATE [Concomitant]
  6. XANAX [Concomitant]
  7. ORENCIA            (ABATACEPT) [Concomitant]

REACTIONS (1)
  - CHORIORETINAL DISORDER [None]
